FAERS Safety Report 23920936 (Version 4)
Quarter: 2024Q3

REPORT INFORMATION
  Report Type: Spontaneous
  Country: US (occurrence: US)
  Receive Date: 20240530
  Receipt Date: 20240820
  Transmission Date: 20241017
  Serious: No
  Sender: PFIZER
  Company Number: US-PFIZER INC-202400174373

PATIENT
  Age: 12 Year
  Sex: Male

DRUGS (3)
  1. GENOTROPIN [Suspect]
     Active Substance: SOMATROPIN
     Indication: Growth hormone deficiency
     Dosage: 1.4 MG, ALTERNATE DAY (ALTERNATING 1.4MG AND 1.6MG EVERY OTHER DAY FOR AN AVERAGE 1.5MG, ADMINISTERE
     Dates: start: 202405
  2. GENOTROPIN [Suspect]
     Active Substance: SOMATROPIN
     Dosage: 1.6 MG, ALTERNATE DAY (ALTERNATING 1.4MG AND 1.6MG EVERY OTHER DAY FOR AN AVERAGE 1.5MG, ADMINISTERE
     Dates: start: 202405
  3. QVAR [Concomitant]
     Active Substance: BECLOMETHASONE DIPROPIONATE
     Indication: Asthma
     Dosage: 1 DF, 2X/DAY (40 STRENGTH; ONE PUFF TWICE A DAY)

REACTIONS (5)
  - Drug dose omission by device [Unknown]
  - Poor quality device used [Unknown]
  - Product communication issue [Unknown]
  - Device mechanical issue [Unknown]
  - Device leakage [Unknown]
